FAERS Safety Report 9123834 (Version 1)
Quarter: 2013Q1

REPORT INFORMATION
  Report Type: Report from Study
  Country: FR (occurrence: FR)
  Receive Date: 20130116
  Receipt Date: 20130116
  Transmission Date: 20140127
  Serious: Yes (Death)
  Sender: FDA-Public Use
  Company Number: FR-PFIZER INC-2013015598

PATIENT
  Sex: Male

DRUGS (1)
  1. CRIZOTINIB [Suspect]

REACTIONS (1)
  - Death [Fatal]
